FAERS Safety Report 7953321-X (Version None)
Quarter: 2011Q4

REPORT INFORMATION
  Report Type: 
  Country: None (occurrence: None)
  Receive Date: 20111202
  Receipt Date: 20111201
  Transmission Date: 20120403
  Serious: Yes (Hospitalization, Other)
  Sender: FDA-Public Use
  Company Number: PL-BIOGENIDEC-2010BI030015

PATIENT
  Age: 33 Year
  Sex: Female

DRUGS (3)
  1. ZINACEF [Concomitant]
     Route: 042
     Dates: start: 20101005, end: 20101019
  2. NATALIZUMAB [Suspect]
     Indication: MULTIPLE SCLEROSIS
     Route: 042
     Dates: start: 20070126, end: 20100812
  3. MIRTAZAPINE [Concomitant]
     Route: 048
     Dates: start: 20100915

REACTIONS (2)
  - PROGRESSIVE MULTIFOCAL LEUKOENCEPHALOPATHY [None]
  - IMMUNE RECONSTITUTION SYNDROME [None]
